FAERS Safety Report 8824344 (Version 5)
Quarter: 2013Q2

REPORT INFORMATION
  Report Type: Report from Study
  Country: JP (occurrence: JP)
  Receive Date: 20121004
  Receipt Date: 20130528
  Transmission Date: 20140414
  Serious: No
  Sender: FDA-Public Use
  Company Number: JP-JNJFOC-20120803301

PATIENT
  Age: 46 Year
  Sex: Female
  Weight: 40 kg

DRUGS (17)
  1. DUROTEP MT [Suspect]
     Indication: PAIN
     Route: 062
     Dates: start: 20110402, end: 20110423
  2. DUROTEP MT [Suspect]
     Indication: PAIN
     Route: 062
     Dates: start: 20110304, end: 20110401
  3. PREDONINE [Concomitant]
     Route: 048
  4. OMEPRAL [Concomitant]
     Route: 048
  5. GLAKAY [Concomitant]
     Route: 048
  6. CELECOX [Concomitant]
     Route: 048
     Dates: start: 20120225
  7. FERROMIA [Concomitant]
     Route: 048
  8. LASIX [Concomitant]
     Route: 048
     Dates: start: 20120215
  9. ACTONEL [Concomitant]
     Route: 048
  10. BAKTAR [Concomitant]
     Route: 048
  11. FLOMAX [Concomitant]
     Route: 048
     Dates: start: 20110225, end: 20110308
  12. FIRSTCIN [Concomitant]
     Route: 065
     Dates: start: 20110210, end: 20110224
  13. PRIMPERAN [Concomitant]
     Route: 048
     Dates: start: 20110311, end: 20110312
  14. LYRICA [Concomitant]
     Route: 048
     Dates: start: 20120207, end: 20120217
  15. TETRAMIDE [Concomitant]
     Route: 048
     Dates: start: 20120207, end: 20120218
  16. ACICLOVIR [Concomitant]
     Route: 065
     Dates: start: 20120207, end: 20120214
  17. VOLTAREN [Concomitant]
     Route: 048
     Dates: start: 20110207, end: 20110224

REACTIONS (5)
  - Drug intolerance [Unknown]
  - Vomiting [Recovered/Resolved]
  - Somnolence [Recovered/Resolved]
  - Nausea [Recovered/Resolved]
  - Incorrect drug administration duration [Unknown]
